FAERS Safety Report 6215734-6 (Version None)
Quarter: 2009Q2

REPORT INFORMATION
  Report Type: 
  Country: None (occurrence: None)
  Receive Date: 20090603
  Receipt Date: 20090522
  Transmission Date: 20091009
  Serious: Yes (Hospitalization, Other)
  Sender: FDA-Public Use
  Company Number: SPV1-2009-00678

PATIENT
  Age: 59 Year
  Sex: Male

DRUGS (8)
  1. FOSRENOL [Suspect]
     Indication: HYPERPHOSPHATAEMIA
     Dosage: 750 MG, ORAL
     Route: 048
     Dates: start: 20090316, end: 20090407
  2. ASPIRIN [Suspect]
     Indication: ATRIAL FIBRILLATION
     Dosage: 100 MG, ORAL
     Route: 048
     Dates: end: 20090407
  3. ASPIRIN [Suspect]
     Indication: ATRIAL FIBRILLATION
     Dosage: 100 MG, ORAL
     Route: 048
     Dates: start: 20090424
  4. CALTAN (CALCIUM CARBONATE) [Concomitant]
  5. FOLIC ACID [Concomitant]
  6. SELBEX (TEPRENONE) [Concomitant]
  7. PURSENNID /00571901/ (SENNOSIDE A+B) [Concomitant]
  8. BEPRICOR /00788901/ (BEPRIDIL) [Concomitant]

REACTIONS (6)
  - ANAEMIA [None]
  - CARDIAC FAILURE [None]
  - DYSPNOEA [None]
  - GASTRITIS [None]
  - GASTROINTESTINAL HAEMORRHAGE [None]
  - GASTROOESOPHAGEAL REFLUX DISEASE [None]
